FAERS Safety Report 24534156 (Version 1)
Quarter: 2024Q4

REPORT INFORMATION
  Report Type: Spontaneous
  Country: US (occurrence: None)
  Receive Date: 20241021
  Receipt Date: 20241021
  Transmission Date: 20250115
  Serious: Yes (Hospitalization)
  Sender: Public
  Company Number: None

PATIENT
  Age: 86 Year
  Sex: Male
  Weight: 64.7 kg

DRUGS (5)
  1. SEMAGLUTIDE [Suspect]
     Active Substance: SEMAGLUTIDE
     Indication: Diabetes mellitus
     Dosage: FREQUENCY : DAILY;?
     Route: 048
     Dates: start: 20231101, end: 20240719
  2. Metforming 1000mg BID [Concomitant]
  3. Glimepiride 2mg Daily [Concomitant]
  4. Atorvastatin 10mg Bedtime [Concomitant]
  5. Carbidopa/Levodopa 25/100mg TID [Concomitant]

REACTIONS (8)
  - Syncope [None]
  - Mental status changes [None]
  - Sepsis [None]
  - Urinary tract infection [None]
  - Abdominal discomfort [None]
  - Nausea [None]
  - Vomiting [None]
  - Impaired gastric emptying [None]

NARRATIVE: CASE EVENT DATE: 20240816
